FAERS Safety Report 7047001-5 (Version None)
Quarter: 2010Q4

REPORT INFORMATION
  Report Type: 
  Country: None (occurrence: None)
  Receive Date: 20101015
  Receipt Date: 20101011
  Transmission Date: 20110411
  Serious: Yes (Death, Hospitalization)
  Sender: FDA-Public Use
  Company Number: ES-SANOFI-AVENTIS-2010SA062663

PATIENT
  Age: 81 Year
  Sex: Male

DRUGS (6)
  1. TAXOTERE [Suspect]
     Indication: PROSTATE CANCER
     Route: 041
     Dates: start: 20100902, end: 20100902
  2. BLINDED THERAPY [Suspect]
     Indication: PROSTATE CANCER
     Route: 048
     Dates: start: 20100902, end: 20100908
  3. PREDNISONE [Suspect]
     Indication: PROSTATE CANCER
     Route: 048
     Dates: start: 20100902
  4. AMBROXOL [Concomitant]
     Dates: start: 20100825, end: 20101001
  5. ADOLONTA [Concomitant]
     Dates: start: 20100901, end: 20101001
  6. SULFAMETHOXAZOLE AND TRIMETHOPRIM [Concomitant]
     Dates: start: 20100825, end: 20101001

REACTIONS (3)
  - CORONARY ARTERY DISEASE [None]
  - PNEUMONIA [None]
  - PULMONARY EMBOLISM [None]
